FAERS Safety Report 10744425 (Version 1)
Quarter: 2015Q1

REPORT INFORMATION
  Report Type: Spontaneous
  Country: US (occurrence: None)
  Receive Date: 20150126
  Receipt Date: 20150126
  Transmission Date: 20150721
  Serious: Yes (Disabling)
  Sender: FDA-Public Use
  Company Number: None

PATIENT
  Age: 61 Year
  Sex: Male
  Weight: 83.92 kg

DRUGS (1)
  1. PROGRAF [Suspect]
     Active Substance: TACROLIMUS\TACROLIMUS ANHYDROUS
     Indication: PROPHYLAXIS AGAINST TRANSPLANT REJECTION
     Dates: start: 20140512, end: 20150123

REACTIONS (7)
  - Diabetes mellitus [None]
  - Tinnitus [None]
  - Tremor [None]
  - Macular degeneration [None]
  - Insomnia [None]
  - Hypertension [None]
  - Vision blurred [None]
